FAERS Safety Report 5512130-1 (Version None)
Quarter: 2007Q4

REPORT INFORMATION
  Report Type: 
  Country: None (occurrence: None)
  Receive Date: 20071109
  Receipt Date: 20071105
  Transmission Date: 20080405
  Serious: Yes (Disabling, Other)
  Sender: FDA-Public Use
  Company Number: PHFR2007GB02736

PATIENT
  Age: 59 Year
  Sex: Female

DRUGS (4)
  1. ZOMETA [Suspect]
     Indication: METASTASES TO BONE
     Dosage: 4 MG, QMO
     Route: 042
     Dates: start: 20040720, end: 20061201
  2. CALCICHEW-D3 MITE [Concomitant]
     Dosage: UNK, UNK
     Route: 048
     Dates: start: 20040101, end: 20060101
  3. MEDROXYPROGESTERONE ACETATE [Concomitant]
     Dosage: 300 MG, QD
     Route: 048
  4. ORAMORPH SR [Concomitant]
     Dosage: 10 MG, PRN
     Route: 048

REACTIONS (3)
  - NUCLEAR MAGNETIC RESONANCE IMAGING ABNORMAL [None]
  - OSTEONECROSIS [None]
  - PAIN IN EXTREMITY [None]
